FAERS Safety Report 7206340-5 (Version None)
Quarter: 2011Q1

REPORT INFORMATION
  Report Type: 
  Country: None (occurrence: None)
  Receive Date: 20110103
  Receipt Date: 20110103
  Transmission Date: 20110831
  Serious: Yes (Hospitalization)
  Sender: FDA-Public Use
  Company Number: PHHO2007DE19308

PATIENT
  Sex: Male
  Weight: 107.5 kg

DRUGS (8)
  1. ALLOPURINOL [Concomitant]
  2. AMLODIPINE [Concomitant]
  3. CARVEDILOL [Concomitant]
  4. TENOFOVIR DISOPROXIL FUMARATE [Concomitant]
  5. THIAZID-COMP [Concomitant]
  6. CERTICAN [Suspect]
     Indication: CONGENITAL CYSTIC KIDNEY DISEASE
     Dosage: UNK
     Route: 048
     Dates: start: 20070418, end: 20071117
  7. ENALAPRIL [Suspect]
     Dosage: 10/ORAL
     Route: 048
     Dates: start: 20071117, end: 20071120
  8. OLMESARTAN MEDOXOMIL [Concomitant]

REACTIONS (5)
  - GOUT [None]
  - ARTHRALGIA [None]
  - MYALGIA [None]
  - ANGIOEDEMA [None]
  - INFECTION [None]
